FAERS Safety Report 4387051-0 (Version None)
Quarter: 2004Q2

REPORT INFORMATION
  Report Type: 
  Country: None (occurrence: None)
  Receive Date: 20040625
  Receipt Date: 20040616
  Transmission Date: 20050107
  Serious: Yes (Hospitalization)
  Sender: FDA-Public Use
  Company Number: 2004-06-0961

PATIENT
  Age: 62 Year
  Sex: Male

DRUGS (1)
  1. AERIUS        (DESCLORATADINE) [Suspect]
     Indication: DRUG USE FOR UNKNOWN INDICATION
     Dosage: ORAL
     Route: 048
     Dates: start: 20040215, end: 20040301

REACTIONS (4)
  - HEPATITIS CHOLESTATIC [None]
  - HYPERGAMMAGLOBULINAEMIA [None]
  - PLASMACYTOSIS [None]
  - TREATMENT NONCOMPLIANCE [None]
